FAERS Safety Report 6868658-5 (Version None)
Quarter: 2010Q3

REPORT INFORMATION
  Report Type: 
  Country: None (occurrence: None)
  Receive Date: 20100721
  Receipt Date: 20100721
  Transmission Date: 20110219
  Serious: Yes (Hospitalization)
  Sender: FDA-Public Use
  Company Number: None

PATIENT
  Age: 40 Year
  Sex: Female
  Weight: 58.9676 kg

DRUGS (1)
  1. ADVAIR DISKUS 100/50 [Suspect]
     Indication: ASTHMA
     Dosage: ONE INHALATION 2X/DAY-?- OTHER, NOV 08-SEP 08
     Route: 050

REACTIONS (5)
  - DERMATITIS [None]
  - MIDDLE INSOMNIA [None]
  - MUSCLE SPASMS [None]
  - TENDON RUPTURE [None]
  - TENDONITIS [None]
